FAERS Safety Report 7620527-9 (Version None)
Quarter: 2011Q3

REPORT INFORMATION
  Report Type: 
  Country: None (occurrence: None)
  Receive Date: 20110719
  Receipt Date: 20110714
  Transmission Date: 20111222
  Serious: Yes (Hospitalization)
  Sender: FDA-Public Use
  Company Number: US-GLAXOSMITHKLINE-A0937035A

PATIENT
  Age: 24 Year
  Sex: Male

DRUGS (5)
  1. VITAMIN E [Concomitant]
  2. CALCIUM CARBONATE [Concomitant]
  3. ASCORBIC ACID [Concomitant]
  4. ALLI [Suspect]
     Indication: PRODUCT USED FOR UNKNOWN INDICATION
     Route: 065
     Dates: start: 20091001, end: 20091201
  5. B6 [Concomitant]

REACTIONS (1)
  - HEPATITIS ACUTE [None]
